FAERS Safety Report 25898673 (Version 1)
Quarter: 2025Q4

REPORT INFORMATION
  Report Type: Spontaneous
  Country: CA (occurrence: CA)
  Receive Date: 20251009
  Receipt Date: 20251009
  Transmission Date: 20260118
  Serious: Yes (Other)
  Sender: VELOXIS PHARMACEUTICALS
  Company Number: CA-MLMSERVICE-20250923-PI650371-00306-1

PATIENT
  Age: 36 Year
  Sex: Female

DRUGS (7)
  1. TACROLIMUS [Suspect]
     Active Substance: TACROLIMUS
     Indication: Immunosuppressant drug therapy
     Dosage: DOSED TO A TROUGH LEVEL OF 4?8?NG/ML; IN RESPONSE TO A REPEATEDLY LOW TACROLIMUS LEVEL OF 2 NG/ML, THE DOSE WAS INCREASED TO MAINTAIN A THERAPEUTIC TROUGH LEVEL OF 4?8 NG/ ML.
     Route: 065
  2. ECULIZUMAB [Concomitant]
     Active Substance: ECULIZUMAB
     Indication: Immunosuppressant drug therapy
     Dosage: ADMINISTERED IN THE PERIOPERATIVE PERIOD AT A DOSE OF 1200 MG INTRAVENOUSLY (IV), FOLLOWED BY 1200 MG IV WEEKLY FOR 2 WEEKS, THEN EVERY 2 WEEKS THEREAFTER AS MAINTENANCE THERAPY.
  3. ECULIZUMAB [Concomitant]
     Active Substance: ECULIZUMAB
     Dosage: ADMINISTERED IN THE PERIOPERATIVE PERIOD AT A DOSE OF 1200 MG INTRAVENOUSLY (IV), FOLLOWED BY 1200 MG IV WEEKLY FOR 2 WEEKS, THEN EVERY 2 WEEKS THEREAFTER AS MAINTENANCE THERAPY.
  4. ECULIZUMAB [Concomitant]
     Active Substance: ECULIZUMAB
     Dosage: ADMINISTERED IN THE PERIOPERATIVE PERIOD AT A DOSE OF 1200 MG INTRAVENOUSLY (IV), FOLLOWED BY 1200 MG IV WEEKLY FOR 2 WEEKS, THEN EVERY 2 WEEKS THEREAFTER AS MAINTENANCE THERAPY.
  5. ASPIRIN [Concomitant]
     Active Substance: ASPIRIN
     Indication: Pre-eclampsia
     Dosage: 80 MILLIGRAM, QD
  6. LABETALOL [Concomitant]
     Active Substance: LABETALOL
     Indication: Hypertension
     Dosage: UNK
  7. AZATHIOPRINE [Concomitant]
     Active Substance: AZATHIOPRINE
     Indication: Immunosuppressant drug therapy
     Dosage: UNK

REACTIONS (1)
  - Renal tubular necrosis [Recovered/Resolved]
